FAERS Safety Report 20664048 (Version 1)
Quarter: 2022Q2

REPORT INFORMATION
  Report Type: Other
  Country: US (occurrence: None)
  Receive Date: 20220401
  Receipt Date: 20220401
  Transmission Date: 20220721
  Serious: Yes (Other)
  Sender: FDA-Public Use
  Company Number: US-ROCHE-2977702

PATIENT
  Sex: Male
  Weight: 105.33 kg

DRUGS (13)
  1. ACTEMRA [Suspect]
     Active Substance: TOCILIZUMAB
     Indication: Rheumatoid arthritis
     Dosage: INJECT 0.9ML SUBCUTANEOUSLY EVERY WEEK
     Route: 058
     Dates: start: 20180906
  2. ACTEMRA [Suspect]
     Active Substance: TOCILIZUMAB
  3. ACTEMRA [Suspect]
     Active Substance: TOCILIZUMAB
     Indication: Rheumatoid arthritis
  4. ACTEMRA [Suspect]
     Active Substance: TOCILIZUMAB
  5. METFORMIN [Concomitant]
     Active Substance: METFORMIN HYDROCHLORIDE
  6. PAROXETINE [Concomitant]
     Active Substance: PAROXETINE
  7. ATORVASTATIN [Concomitant]
     Active Substance: ATORVASTATIN
  8. PIOGLITAZONE [Concomitant]
     Active Substance: PIOGLITAZONE
  9. PREDNISONE [Concomitant]
     Active Substance: PREDNISONE
  10. TYLENOL WITH CODEINE [Concomitant]
     Active Substance: ACETAMINOPHEN\CODEINE PHOSPHATE
  11. COZAAR [Concomitant]
     Active Substance: LOSARTAN POTASSIUM
  12. NOVOLIN 70/30 [Concomitant]
     Active Substance: INSULIN HUMAN
  13. EUTHYROX [Concomitant]
     Active Substance: LEVOTHYROXINE SODIUM

REACTIONS (6)
  - Infection [Unknown]
  - Cellulitis [Unknown]
  - Pyrexia [Unknown]
  - Pain [Unknown]
  - Swelling [Unknown]
  - Arthropathy [Unknown]
